FAERS Safety Report 8874874 (Version 1)
Quarter: 2012Q4

REPORT INFORMATION
  Report Type: 
  Country: GB (occurrence: GB)
  Receive Date: 20121023
  Receipt Date: 20121023
  Transmission Date: 20130627
  Serious: Yes (Other)
  Sender: FDA-Public Use
  Company Number: GB-ROCHE-1143384

PATIENT
  Age: 56 Year
  Sex: Male
  Weight: 60 kg

DRUGS (9)
  1. RIBAVIRIN [Suspect]
     Indication: HEPATITIS C
     Route: 048
     Dates: start: 20110809
  2. TELAPREVIR [Suspect]
     Indication: HEPATITIS C
     Route: 048
     Dates: start: 20110809
  3. TELAPREVIR [Suspect]
     Indication: HEPATIC CIRRHOSIS
  4. PIRITON [Suspect]
     Indication: PRURITUS
     Route: 048
     Dates: start: 20110905
  5. PIRITON [Suspect]
     Indication: RASH
  6. PEGYLATED INTERFERON NOS [Suspect]
     Indication: HEPATITIS C
     Route: 058
     Dates: start: 20110809
  7. METHADONE [Concomitant]
     Dosage: 85 mg/mL
     Route: 048
  8. ZOPICLONE [Concomitant]
     Indication: INSOMNIA
     Route: 048
     Dates: start: 20110805
  9. E45 (UNITED KINGDOM) [Concomitant]
     Indication: RASH
     Route: 061
     Dates: start: 20110805

REACTIONS (8)
  - Platelet count decreased [Unknown]
  - Haemoglobin decreased [Unknown]
  - Oral candidiasis [Unknown]
  - Lower respiratory tract infection [Unknown]
  - Tremor [Recovered/Resolved]
  - Insomnia [Recovering/Resolving]
  - Rash [Recovering/Resolving]
  - Disorientation [Recovered/Resolved]
